FAERS Safety Report 5594523-X (Version None)
Quarter: 2008Q1

REPORT INFORMATION
  Report Type: 
  Country: None (occurrence: None)
  Receive Date: 20080117
  Receipt Date: 20080110
  Transmission Date: 20080703
  Serious: Yes (Other)
  Sender: FDA-Public Use
  Company Number: US-JNJFOC-20070706887

PATIENT
  Age: 40 Year
  Sex: Female

DRUGS (2)
  1. OFLOXACIN [Suspect]
     Indication: DIARRHOEA HAEMORRHAGIC
     Route: 065
  2. OFLOXACIN [Suspect]
     Indication: DIARRHOEA
     Route: 065

REACTIONS (1)
  - ACUTE FEBRILE NEUTROPHILIC DERMATOSIS [None]
